FAERS Safety Report 4885848-1 (Version None)
Quarter: 2006Q1

REPORT INFORMATION
  Report Type: 
  Country: None (occurrence: None)
  Receive Date: 20060120
  Receipt Date: 20060111
  Transmission Date: 20060701
  Serious: Yes (Hospitalization)
  Sender: FDA-Public Use
  Company Number: NL-JNJFOC-20060102754

PATIENT
  Sex: Male

DRUGS (8)
  1. REMINYL [Suspect]
     Route: 048
  2. REMINYL [Suspect]
     Route: 048
  3. REMINYL [Suspect]
     Route: 048
  4. REMINYL [Suspect]
     Route: 048
  5. REMINYL [Suspect]
     Route: 048
  6. REMINYL [Suspect]
     Indication: DEMENTIA
     Route: 048
  7. SIMVASTATIN [Concomitant]
  8. CARBASALATE CALCIUM [Concomitant]

REACTIONS (3)
  - DYSPNOEA [None]
  - FATIGUE [None]
  - PULMONARY OEDEMA [None]
